FAERS Safety Report 6904481-0 (Version None)
Quarter: 2010Q3

REPORT INFORMATION
  Report Type: 
  Country: None (occurrence: None)
  Receive Date: 20100804
  Receipt Date: 20090527
  Transmission Date: 20110219
  Serious: Yes (Other)
  Sender: FDA-Public Use
  Company Number: US-PFIZER INC-2009170612

PATIENT
  Sex: Female

DRUGS (16)
  1. LYRICA [Suspect]
     Indication: FIBROMYALGIA
     Dosage: UNK
  2. LYRICA [Suspect]
     Indication: PAIN IN EXTREMITY
  3. POTASSIUM CHLORIDE [Concomitant]
     Dosage: 20 MEQ, 2X/DAY
     Route: 042
  4. SYNTHROID [Concomitant]
     Dosage: 150 UG, 1X/DAY
     Route: 048
  5. ALLOPURINOL [Concomitant]
     Dosage: 300 MG, 1X/DAY
     Route: 048
  6. FOLIC ACID [Concomitant]
     Dosage: 1 MG, 1X/DAY
     Route: 048
  7. PROTONIX [Concomitant]
     Dosage: 40 MG, 1X/DAY
     Route: 048
  8. CENTRUM [Concomitant]
     Dosage: 1 TABLET DAILY
     Route: 048
  9. EFFEXOR [Concomitant]
     Dosage: 75 MG, 2X/DAY
     Route: 048
  10. PREDNISONE [Concomitant]
     Dosage: 5 MG, 1X/DAY
  11. PROPRANOLOL HYDROCHLORIDE [Concomitant]
     Dosage: 80 MG, 2X/DAY
     Route: 048
  12. BUSPAR [Concomitant]
     Dosage: 15 MG, 2X/DAY
     Route: 048
  13. KLONOPIN [Concomitant]
     Dosage: 1 MG, 1X/DAY
     Route: 048
  14. TOPAMAX [Concomitant]
     Dosage: 100 MG, 2X/DAY
     Route: 048
  15. ANAPROX [Concomitant]
     Dosage: 550 MG, 2X/DAY
     Route: 048
  16. BENADRYL [Concomitant]
     Dosage: 50 MG, 2X/DAY

REACTIONS (2)
  - DRUG INEFFECTIVE [None]
  - WEIGHT INCREASED [None]
